FAERS Safety Report 7955624-1 (Version None)
Quarter: 2011Q4

REPORT INFORMATION
  Report Type: 
  Country: None (occurrence: None)
  Receive Date: 20111203
  Receipt Date: 20111129
  Transmission Date: 20120403
  Serious: Yes (Other)
  Sender: FDA-Public Use
  Company Number: DE-BRACCO-000208

PATIENT
  Sex: Female

DRUGS (4)
  1. RANITIDINE HCL [Concomitant]
     Indication: SYSTEMIC MASTOCYTOSIS
     Dosage: STRENGTH 150 MG, 1-0-1, STARTED PRIOR TO MRI
  2. FEXOFENADINE HCL [Concomitant]
     Indication: SYSTEMIC MASTOCYTOSIS
     Dosage: 120 MG TABLET 1-0-1, STARTED PRIOR TO MRI
  3. MULTIHANCE [Suspect]
     Indication: PITUITARY TUMOUR BENIGN
     Dosage: DOSE FORM: AMPOULE; DOSAGE: 0,5 AMPOULLE IN LEFT ELLBOW (PARA) AND 0,5 AMPOULLE IN RIGHT ELLBOW.
     Route: 042
     Dates: start: 20081009, end: 20081009
  4. MULTIHANCE [Suspect]
     Indication: NUCLEAR MAGNETIC RESONANCE IMAGING
     Dosage: DOSE FORM: AMPOULE; DOSAGE: 0,5 AMPOULLE IN LEFT ELLBOW (PARA) AND 0,5 AMPOULLE IN RIGHT ELLBOW.
     Route: 042
     Dates: start: 20081009, end: 20081009

REACTIONS (14)
  - NIGHTMARE [None]
  - DYSPNOEA [None]
  - PAIN IN EXTREMITY [None]
  - PYREXIA [None]
  - INJECTION SITE SWELLING [None]
  - FEELING HOT [None]
  - ERYTHEMA [None]
  - GROWING PAINS [None]
  - INJECTION SITE ERYTHEMA [None]
  - SWELLING FACE [None]
  - FATIGUE [None]
  - EXTRAVASATION [None]
  - HYPERHIDROSIS [None]
  - INJECTION SITE PAIN [None]
